FAERS Safety Report 19034038 (Version 1)
Quarter: 2021Q1

REPORT INFORMATION
  Report Type: Report from Study
  Country: CA (occurrence: CA)
  Receive Date: 20210319
  Receipt Date: 20210319
  Transmission Date: 20210420
  Serious: Yes (Hospitalization)
  Sender: FDA-Public Use
  Company Number: CA-BAUSCH-BL-2021-008985

PATIENT
  Age: 70 Year
  Sex: Male

DRUGS (2)
  1. SILIQ [Suspect]
     Active Substance: BRODALUMAB
     Indication: PSORIASIS
     Dosage: STRENGTH: 210MG/1.5 ML
     Route: 058
     Dates: start: 20200304, end: 202003
  2. SILIQ [Suspect]
     Active Substance: BRODALUMAB
     Dosage: STRENGTH: 210MG/1.5 ML
     Route: 058
     Dates: start: 2020, end: 202103

REACTIONS (1)
  - Hepatic cancer [Not Recovered/Not Resolved]
